FAERS Safety Report 18094278 (Version 2)
Quarter: 2021Q1

REPORT INFORMATION
  Report Type: Spontaneous
  Country: US (occurrence: US)
  Receive Date: 20200730
  Receipt Date: 20210131
  Transmission Date: 20210419
  Serious: Yes (Disabling, Other)
  Sender: FDA-Public Use
  Company Number: US-PURDUE-USA-2020-0160047

PATIENT
  Sex: Male

DRUGS (3)
  1. OXYCONTIN [Suspect]
     Active Substance: OXYCODONE HYDROCHLORIDE
     Dosage: 30 MG, Q4? 6H
     Route: 048
     Dates: start: 2014, end: 2017
  2. XANAX [Concomitant]
     Active Substance: ALPRAZOLAM
     Indication: PRODUCT USED FOR UNKNOWN INDICATION
     Dosage: 2 MG, UNK
     Route: 065
  3. OXYCONTIN [Suspect]
     Active Substance: OXYCODONE HYDROCHLORIDE
     Indication: PRODUCT USED FOR UNKNOWN INDICATION
     Dosage: 15 MG, UNK
     Route: 048
     Dates: start: 2001, end: 2017

REACTIONS (9)
  - Cardiac disorder [Unknown]
  - Learning disability [Unknown]
  - Arthritis [Not Recovered/Not Resolved]
  - Cardiac failure chronic [Unknown]
  - Disability [Not Recovered/Not Resolved]
  - Metabolic encephalopathy [Unknown]
  - Brain injury [Unknown]
  - Developmental delay [Unknown]
  - Drug dependence [Unknown]
